FAERS Safety Report 8832722 (Version 1)
Quarter: 2012Q4

REPORT INFORMATION
  Report Type: Spontaneous
  Country: US (occurrence: None)
  Receive Date: 20121009
  Receipt Date: 20121009
  Transmission Date: 20130627
  Serious: No
  Sender: FDA-Public Use
  Company Number: None

PATIENT
  Age: 68 Year
  Sex: Male
  Weight: 65.32 kg

DRUGS (2)
  1. LEVOTHYROXINE [Suspect]
     Indication: HYPOTHYROIDISM
     Dosage: 1 tablet daily po
     Route: 048
  2. TERAZOSIN [Concomitant]

REACTIONS (4)
  - Product quality issue [None]
  - Agitation [None]
  - Poor quality sleep [None]
  - Gastrointestinal inflammation [None]
